FAERS Safety Report 6497892-1 (Version None)
Quarter: 2009Q4

REPORT INFORMATION
  Report Type: 
  Country: None (occurrence: None)
  Receive Date: 20091215
  Receipt Date: 20091204
  Transmission Date: 20100525
  Serious: Yes (Other)
  Sender: FDA-Public Use
  Company Number: ES-NOVOPROD-301705

PATIENT
  Age: 28 Year
  Sex: Female

DRUGS (3)
  1. LEVEMIR [Suspect]
     Dosage: 20 IU / SC
     Dates: start: 20060101
  2. NOVOLOG [Interacting]
     Dosage: 20 IU / SC
     Dates: start: 20060101
  3. TRYPTIZOL                          /00002202/ [Interacting]
     Indication: HEADACHE
     Dosage: 25 MG
     Dates: start: 20090317, end: 20090320

REACTIONS (3)
  - AGITATION [None]
  - BLOOD GLUCOSE DECREASED [None]
  - DRUG INTERACTION [None]
